FAERS Safety Report 22080451 (Version 1)
Quarter: 2023Q1

REPORT INFORMATION
  Report Type: Spontaneous
  Country: US (occurrence: US)
  Receive Date: 20230309
  Receipt Date: 20230309
  Transmission Date: 20230417
  Serious: Yes (Other)
  Sender: FDA-Public Use
  Company Number: US-PFIZER INC-PV202300045787

PATIENT
  Age: 58 Year
  Sex: Female

DRUGS (1)
  1. XELJANZ XR [Suspect]
     Active Substance: TOFACITINIB CITRATE
     Dosage: UNK
     Dates: end: 202212

REACTIONS (5)
  - Pulmonary necrosis [Unknown]
  - Pleural effusion [Unknown]
  - Pneumonia [Unknown]
  - Rheumatoid nodule [Unknown]
  - Sinusitis [Unknown]
